FAERS Safety Report 6246539-8 (Version None)
Quarter: 2009Q2

REPORT INFORMATION
  Report Type: 
  Country: None (occurrence: None)
  Receive Date: 20090626
  Receipt Date: 20090619
  Transmission Date: 20091009
  Serious: Yes (Other)
  Sender: FDA-Public Use
  Company Number: US-ASTRAZENECA-2007UW09603

PATIENT
  Age: 11656 Day
  Sex: Male
  Weight: 156.5 kg

DRUGS (5)
  1. SEROQUEL [Suspect]
     Indication: SLEEP DISORDER THERAPY
     Dosage: 10-25 MG
     Route: 048
     Dates: start: 20000101, end: 20070101
  2. SEROQUEL [Suspect]
     Indication: BIPOLAR DISORDER
     Dosage: 10-25 MG
     Route: 048
     Dates: start: 20000101, end: 20070101
  3. SEROQUEL [Suspect]
     Indication: DEPRESSION
     Dosage: 10-25 MG
     Route: 048
     Dates: start: 20000101, end: 20070101
  4. ZYPREXA [Concomitant]
     Dates: start: 20070101, end: 20070101
  5. ABILIFY [Concomitant]
     Dates: start: 20050901

REACTIONS (6)
  - BLOOD CHOLESTEROL INCREASED [None]
  - MENTAL DISORDER [None]
  - NEUROPATHY PERIPHERAL [None]
  - OBESITY [None]
  - SLEEP APNOEA SYNDROME [None]
  - TYPE 2 DIABETES MELLITUS [None]
